FAERS Safety Report 21719907 (Version 1)
Quarter: 2022Q4

REPORT INFORMATION
  Report Type: Other
  Country: US (occurrence: US)
  Receive Date: 20221213
  Receipt Date: 20221213
  Transmission Date: 20230112
  Serious: Yes (Hospitalization, Other)
  Sender: FDA-Public Use
  Company Number: US-HLS-202104977

PATIENT
  Age: 21 Year
  Sex: Male

DRUGS (2)
  1. CLOZAPINE [Suspect]
     Active Substance: CLOZAPINE
     Indication: Product used for unknown indication
     Dosage: AT BEDTIME
     Route: 065
  2. LORAZEPAM [Concomitant]
     Active Substance: LORAZEPAM
     Indication: Catatonia
     Dosage: 3 MG THREE TIMES DAILY
     Route: 065

REACTIONS (11)
  - Chest pain [Unknown]
  - C-reactive protein [Unknown]
  - Fibrin D dimer increased [Unknown]
  - Delusion [Recovered/Resolved]
  - Influenza like illness [Unknown]
  - Hallucination [Recovered/Resolved]
  - Troponin increased [Unknown]
  - Pyrexia [Unknown]
  - Myocarditis [Unknown]
  - Electrocardiogram T wave abnormal [Unknown]
  - Tachycardia [Unknown]
